FAERS Safety Report 4394117-8 (Version None)
Quarter: 2004Q3

REPORT INFORMATION
  Report Type: 
  Country: None (occurrence: None)
  Receive Date: 20040712
  Receipt Date: 20040629
  Transmission Date: 20050211
  Serious: Yes (Hospitalization)
  Sender: FDA-Public Use
  Company Number: IT-BRISTOL-MYERS SQUIBB COMPANY-12636288

PATIENT
  Age: 40 Year
  Sex: Female

DRUGS (4)
  1. ENDOXAN [Suspect]
     Indication: MULTIPLE SCLEROSIS
     Route: 042
     Dates: start: 20040507, end: 20040507
  2. UROMITEXAN [Suspect]
     Indication: MULTIPLE SCLEROSIS
  3. SOLU-MEDROL [Concomitant]
     Route: 042
  4. KYTRIL [Concomitant]

REACTIONS (1)
  - HEPATITIS CHOLESTATIC [None]
